FAERS Safety Report 25515335 (Version 3)
Quarter: 2025Q3

REPORT INFORMATION
  Report Type: Spontaneous
  Country: US (occurrence: US)
  Receive Date: 20250704
  Receipt Date: 20250707
  Transmission Date: 20251020
  Serious: Yes (Life-Threatening, Hospitalization, Other)
  Sender: BAXTER
  Company Number: US-BAXTER-2025BAX017363

PATIENT
  Age: 39 Year
  Sex: Female

DRUGS (6)
  1. ACETAMINOPHEN [Suspect]
     Active Substance: ACETAMINOPHEN
     Route: 065
  2. DEXMEDETOMIDINE [Suspect]
     Active Substance: DEXMEDETOMIDINE
     Indication: Agitation
     Route: 065
  3. FENTANYL [Concomitant]
     Active Substance: FENTANYL
  4. HALOPERIDOL [Concomitant]
     Active Substance: HALOPERIDOL
  5. ATROPINE [Concomitant]
     Active Substance: ATROPINE
  6. MIDAZOLAM [Concomitant]
     Active Substance: MIDAZOLAM

REACTIONS (6)
  - Overdose [Recovering/Resolving]
  - Bradycardia [Recovering/Resolving]
  - Mental status changes [Recovering/Resolving]
  - Encephalopathy [Recovering/Resolving]
  - Agitation [Recovering/Resolving]
  - Torsade de pointes [Recovered/Resolved]
